FAERS Safety Report 4662898-1 (Version None)
Quarter: 2005Q2

REPORT INFORMATION
  Report Type: 
  Country: None (occurrence: None)
  Receive Date: 20050502
  Receipt Date: 20050214
  Transmission Date: 20051028
  Serious: No
  Sender: FDA-Public Use
  Company Number: 200511170US

PATIENT
  Age: 59 Year
  Sex: Female

DRUGS (2)
  1. KETEK [Suspect]
     Indication: SINUSITIS
     Dosage: 800 MG QD PO
     Route: 048
  2. HORMONE DRUG (NOS) [Concomitant]

REACTIONS (3)
  - INFLUENZA [None]
  - VISION BLURRED [None]
  - VOMITING [None]
